FAERS Safety Report 8901761 (Version 1)
Quarter: 2012Q4

REPORT INFORMATION
  Report Type: Spontaneous
  Country: US (occurrence: None)
  Receive Date: 20121105
  Receipt Date: 20121105
  Transmission Date: 20130627
  Serious: Yes (Death)
  Sender: FDA-Public Use
  Company Number: DKLU1085522

PATIENT
  Age: 3 Month
  Sex: Female

DRUGS (3)
  1. SABRIL [Suspect]
     Indication: INFANTILE SPASMS
  2. ONFI (CLOBAZAM) (CLOBAZAM) [Concomitant]
  3. KEPPRA (LEVETIRACETAM) [Concomitant]

REACTIONS (1)
  - Death [None]
